FAERS Safety Report 22190264 (Version 1)
Quarter: 2023Q2

REPORT INFORMATION
  Report Type: Spontaneous
  Country: US (occurrence: US)
  Receive Date: 20230410
  Receipt Date: 20230410
  Transmission Date: 20230721
  Serious: No
  Sender: FDA-Public Use
  Company Number: US-SA-SAC20230405001093

PATIENT
  Age: 5 Year
  Sex: Male

DRUGS (1)
  1. DUPIXENT [Suspect]
     Active Substance: DUPILUMAB
     Indication: Dermatitis atopic
     Dosage: 300 MG, Q4W
     Route: 058
     Dates: start: 20221018

REACTIONS (5)
  - Oral mucosal erythema [Unknown]
  - Stomatitis [Unknown]
  - Circumoral swelling [Unknown]
  - Eczema [Unknown]
  - Skin erosion [Unknown]

NARRATIVE: CASE EVENT DATE: 20230331
